FAERS Safety Report 16261508 (Version 2)
Quarter: 2019Q2

REPORT INFORMATION
  Report Type: Spontaneous
  Country: TH (occurrence: TH)
  Receive Date: 20190501
  Receipt Date: 20190528
  Transmission Date: 20190711
  Serious: Yes (Life-Threatening, Hospitalization, Other)
  Sender: FDA-Public Use
  Company Number: TH-ELI_LILLY_AND_COMPANY-TH201904015844

PATIENT
  Age: 52 Year
  Sex: Male

DRUGS (3)
  1. GEMCITABINE HYDROCHLORIDE. [Suspect]
     Active Substance: GEMCITABINE HYDROCHLORIDE
     Indication: CHOLANGIOCARCINOMA
     Dosage: D1, 8, 15 Q 28 DAY
     Route: 042
     Dates: start: 2017, end: 2017
  2. GEMCITABINE HYDROCHLORIDE. [Suspect]
     Active Substance: GEMCITABINE HYDROCHLORIDE
     Dosage: D1, 8, 15 Q 28 DAY
     Route: 042
     Dates: start: 20170222, end: 2017
  3. GEMCITABINE HYDROCHLORIDE. [Suspect]
     Active Substance: GEMCITABINE HYDROCHLORIDE
     Dosage: D1, 8, 15 Q 28 DAY
     Route: 042
     Dates: start: 2017, end: 20170712

REACTIONS (6)
  - Tubulointerstitial nephritis [Recovered/Resolved]
  - Acute kidney injury [Recovered/Resolved]
  - Thrombotic microangiopathy [Recovering/Resolving]
  - Haemolytic anaemia [Recovered/Resolved]
  - Lupus nephritis [Recovered/Resolved]
  - Thrombocytopenia [Recovered/Resolved]

NARRATIVE: CASE EVENT DATE: 20170621
